FAERS Safety Report 6358154-6 (Version None)
Quarter: 2009Q3

REPORT INFORMATION
  Report Type: 
  Country: None (occurrence: None)
  Receive Date: 20090916
  Receipt Date: 20090909
  Transmission Date: 20100115
  Serious: Yes (Life-Threatening, Hospitalization)
  Sender: FDA-Public Use
  Company Number: JP-MERCK-0907USA00143

PATIENT
  Age: 79 Year
  Sex: Female

DRUGS (7)
  1. ZETIA [Suspect]
     Indication: DYSLIPIDAEMIA
     Route: 048
     Dates: start: 20090611, end: 20090625
  2. ASPIRIN [Concomitant]
     Route: 065
  3. SPIRONOLACTONE [Concomitant]
     Route: 065
  4. BENZBROMARONE [Concomitant]
     Route: 065
  5. FAMOTIDINE [Concomitant]
     Route: 065
  6. ROSUVASTATIN CALCIUM [Concomitant]
     Route: 065
  7. FUROSEMIDE [Concomitant]
     Route: 065

REACTIONS (4)
  - ALTERED STATE OF CONSCIOUSNESS [None]
  - BLOOD PRESSURE DECREASED [None]
  - TACHYCARDIA [None]
  - VENTRICULAR EXTRASYSTOLES [None]
